FAERS Safety Report 5750364-1 (Version None)
Quarter: 2008Q2

REPORT INFORMATION
  Report Type: 
  Country: None (occurrence: None)
  Receive Date: 20080523
  Receipt Date: 20080523
  Transmission Date: 20081010
  Serious: No
  Sender: FDA-Public Use
  Company Number: None

PATIENT
  Age: 26 Year
  Sex: Female
  Weight: 56.6996 kg

DRUGS (2)
  1. CREST PRO HEALTH ORAL RINSE  0.07% CETYLPYRIDINIUM   CREST [Suspect]
     Indication: GINGIVITIS
     Dosage: 0.07% CETYLPYRIDINIUM TWICE PER DAY PO
     Route: 048
     Dates: start: 20080401, end: 20080501
  2. CREST PRO HEALTH ORAL RINSE  0.07% CETYLPYRIDINIUM   CREST [Suspect]
     Indication: PREGNANCY
     Dosage: 0.07% CETYLPYRIDINIUM TWICE PER DAY PO
     Route: 048
     Dates: start: 20080401, end: 20080501

REACTIONS (5)
  - CAUSTIC INJURY [None]
  - DYSGEUSIA [None]
  - FEELING ABNORMAL [None]
  - PHARMACEUTICAL PRODUCT COMPLAINT [None]
  - TOOTH DISCOLOURATION [None]
